FAERS Safety Report 9551263 (Version 1)
Quarter: 2013Q3

REPORT INFORMATION
  Report Type: Report from Study
  Country: GB (occurrence: GB)
  Receive Date: 20130925
  Receipt Date: 20130925
  Transmission Date: 20140515
  Serious: Yes (Hospitalization)
  Sender: FDA-Public Use
  Company Number: GB-009507513-1309GBR010726

PATIENT
  Age: 67 Year
  Sex: Female

DRUGS (2)
  1. VORINOSTAT [Suspect]
     Indication: PLASMA CELL MYELOMA
     Dosage: 300 MG, QD
     Route: 048
     Dates: start: 20130821, end: 20130911
  2. LENALIDOMIDE [Suspect]
     Indication: PLASMA CELL MYELOMA
     Dosage: 10 MG, QD
     Route: 048
     Dates: start: 20130821, end: 20130911

REACTIONS (1)
  - Liver function test abnormal [Recovering/Resolving]
